FAERS Safety Report 17517063 (Version 1)
Quarter: 2020Q1

REPORT INFORMATION
  Report Type: Spontaneous
  Country: US (occurrence: US)
  Receive Date: 20200307
  Receipt Date: 20200307
  Transmission Date: 20200409
  Serious: Yes (Life-Threatening, Disabling)
  Sender: FDA-Public Use
  Company Number: None

PATIENT
  Age: 62 Year
  Sex: Female
  Weight: 65.25 kg

DRUGS (3)
  1. MG [Concomitant]
     Active Substance: MAGNESIUM
  2. VITAMINS [Concomitant]
     Active Substance: VITAMINS
  3. LEVOFLOXACIN. [Suspect]
     Active Substance: LEVOFLOXACIN
     Indication: SKIN DISORDER
     Dates: start: 20170807, end: 20170810

REACTIONS (9)
  - Emotional disorder [None]
  - Pain [None]
  - Disability [None]
  - Malaise [None]
  - Asthenia [None]
  - Anxiety [None]
  - Drug interaction [None]
  - Impaired reasoning [None]
  - Near death experience [None]

NARRATIVE: CASE EVENT DATE: 20170810
